FAERS Safety Report 9137690 (Version 2)
Quarter: 2013Q2

REPORT INFORMATION
  Report Type: Report from Study
  Country: DE (occurrence: DE)
  Receive Date: 20130304
  Receipt Date: 20130501
  Transmission Date: 20140414
  Serious: Yes (Hospitalization)
  Sender: FDA-Public Use
  Company Number: DE-ABBOTT-13P-062-1039735-00

PATIENT
  Age: 55 Year
  Sex: Male
  Weight: 63 kg

DRUGS (2)
  1. HUMIRA [Suspect]
     Indication: CROHN^S DISEASE
     Route: 058
     Dates: end: 2012
  2. SALOFALK [Concomitant]
     Indication: PRODUCT USED FOR UNKNOWN INDICATION
     Dosage: 3 G
     Dates: start: 20100318

REACTIONS (4)
  - Gastrointestinal necrosis [Not Recovered/Not Resolved]
  - Crohn^s disease [Recovered/Resolved]
  - Rectal haemorrhage [Unknown]
  - Scar [Not Recovered/Not Resolved]
